FAERS Safety Report 15628618 (Version 2)
Quarter: 2018Q4

REPORT INFORMATION
  Report Type: Report from Study
  Country: CO (occurrence: CO)
  Receive Date: 20181116
  Receipt Date: 20181221
  Transmission Date: 20190205
  Serious: Yes (Other)
  Sender: FDA-Public Use
  Company Number: PHHY2018CO067929

PATIENT
  Sex: Female
  Weight: 57 kg

DRUGS (1)
  1. VOTRIENT [Suspect]
     Active Substance: PAZOPANIB HYDROCHLORIDE
     Indication: SOFT TISSUE SARCOMA
     Dosage: 800 MG, QD
     Route: 048
     Dates: start: 201711

REACTIONS (6)
  - Dyspnoea [Unknown]
  - Dysphonia [Unknown]
  - Hernia [Unknown]
  - Pyrexia [Unknown]
  - Dysuria [Unknown]
  - Agitation [Unknown]
